FAERS Safety Report 19358100 (Version 4)
Quarter: 2021Q3

REPORT INFORMATION
  Report Type: Report from Study
  Country: US (occurrence: US)
  Receive Date: 20210601
  Receipt Date: 20210712
  Transmission Date: 20211014
  Serious: Yes (Hospitalization)
  Sender: FDA-Public Use
  Company Number: US-BIOVITRUM-2021US4325

PATIENT
  Sex: Male

DRUGS (5)
  1. PROPANALOL [Concomitant]
  2. KINERET [Suspect]
     Active Substance: ANAKINRA
     Indication: PRODUCT USED FOR UNKNOWN INDICATION
     Route: 058
     Dates: start: 20210423
  3. ADAVAN [Concomitant]
     Active Substance: UNSPECIFIED INGREDIENT
  4. NITRO PATCH [Concomitant]
     Active Substance: NITROGLYCERIN
  5. TYLENOL [Concomitant]
     Active Substance: ACETAMINOPHEN

REACTIONS (8)
  - Headache [Unknown]
  - Blood creatinine increased [Unknown]
  - Fatigue [Unknown]
  - Rash pruritic [Unknown]
  - Nausea [Unknown]
  - Product dose omission issue [Unknown]
  - Rash [Unknown]
  - Blood pressure fluctuation [Unknown]
